FAERS Safety Report 8552889-2 (Version None)
Quarter: 2012Q3

REPORT INFORMATION
  Report Type: 
  Country: None (occurrence: None)
  Receive Date: 20120724
  Receipt Date: 20120724
  Transmission Date: 20120928
  Serious: No
  Sender: FDA-Public Use
  Company Number: None

PATIENT
  Sex: Male
  Weight: 82.1011 kg

DRUGS (1)
  1. PLAVIX [Suspect]
     Dosage: 75 MG 1 QD
     Dates: start: 20051116, end: 20051130

REACTIONS (4)
  - URTICARIA [None]
  - BLOOD GLUCOSE DECREASED [None]
  - DRY THROAT [None]
  - CHEST PAIN [None]
